FAERS Safety Report 8524818-9 (Version None)
Quarter: 2012Q3

REPORT INFORMATION
  Report Type: 
  Country: None (occurrence: None)
  Receive Date: 20120720
  Receipt Date: 20120710
  Transmission Date: 20120928
  Serious: Yes (Death)
  Sender: FDA-Public Use
  Company Number: FR-GLAXOSMITHKLINE-B0813699A

PATIENT
  Sex: Female

DRUGS (11)
  1. ATGAM [Concomitant]
     Indication: APLASIA
     Dosage: 40MGK PER DAY
     Route: 065
     Dates: start: 20120423, end: 20120427
  2. CANCIDAS [Suspect]
     Indication: BRONCHOPULMONARY ASPERGILLOSIS
     Route: 042
     Dates: start: 20120528, end: 20120530
  3. GENTAMICIN [Suspect]
     Indication: BRONCHOPULMONARY ASPERGILLOSIS
     Route: 042
     Dates: start: 20120526, end: 20120530
  4. COLISTINE [Concomitant]
     Indication: ILL-DEFINED DISORDER
     Route: 048
  5. CIPROFLOXACIN HCL [Suspect]
     Indication: PRODUCT USED FOR UNKNOWN INDICATION
     Dates: start: 20120528, end: 20120604
  6. VFEND [Suspect]
     Indication: BRONCHOPULMONARY ASPERGILLOSIS
     Dosage: 200MG TWICE PER DAY
     Route: 050
     Dates: start: 20120514, end: 20120531
  7. NEORAL [Suspect]
     Indication: APLASIA
     Dosage: 100MG TWICE PER DAY
     Route: 048
     Dates: start: 20120423, end: 20120531
  8. NEUPOGEN [Concomitant]
     Indication: PRODUCT USED FOR UNKNOWN INDICATION
     Route: 065
     Dates: start: 20120401, end: 20120607
  9. BACTRIM [Suspect]
     Indication: PROPHYLAXIS
     Dosage: 1UNIT THREE TIMES PER WEEK
     Route: 042
     Dates: start: 20120401
  10. VANCOMYCIN [Suspect]
     Indication: BRONCHOPULMONARY ASPERGILLOSIS
     Dosage: 1G TWICE PER DAY
     Route: 042
     Dates: start: 20120522
  11. CLAVULANATE POTASSIUM [Suspect]
     Indication: BRONCHOPULMONARY ASPERGILLOSIS
     Route: 042
     Dates: start: 20120528, end: 20120601

REACTIONS (3)
  - FACE OEDEMA [None]
  - RENAL FAILURE ACUTE [None]
  - OEDEMA PERIPHERAL [None]
